FAERS Safety Report 24638061 (Version 2)
Quarter: 2024Q4

REPORT INFORMATION
  Report Type: Spontaneous
  Country: US (occurrence: US)
  Receive Date: 20241119
  Receipt Date: 20241217
  Transmission Date: 20250114
  Serious: No
  Sender: NOVARTIS
  Company Number: US-002147023-NVSC2024US222341

PATIENT
  Sex: Male
  Weight: 79.37 kg

DRUGS (1)
  1. PLUVICTO [Suspect]
     Active Substance: LUTETIUM LU-177 VIPIVOTIDE TETRAXETAN
     Indication: Prostate cancer
     Dosage: UNK (VIAL)
     Route: 042
     Dates: start: 20241120, end: 20241120

REACTIONS (1)
  - General physical health deterioration [Recovering/Resolving]
